FAERS Safety Report 23458743 (Version 1)
Quarter: 2024Q1

REPORT INFORMATION
  Report Type: Spontaneous
  Country: NL (occurrence: NL)
  Receive Date: 20240130
  Receipt Date: 20240130
  Transmission Date: 20240410
  Serious: Yes (Hospitalization)
  Sender: FDA-Public Use
  Company Number: None

PATIENT
  Age: 79 Year
  Sex: Female
  Weight: 50 kg

DRUGS (1)
  1. METHOTREXATE [Suspect]
     Active Substance: METHOTREXATE
     Indication: Seronegative arthritis
     Dosage: 1W15MG
     Route: 065
     Dates: start: 20230821, end: 20231117

REACTIONS (3)
  - Hypercalcaemia [Recovering/Resolving]
  - Blood 1,25-dihydroxycholecalciferol increased [Recovering/Resolving]
  - Pneumonitis [Recovering/Resolving]
